FAERS Safety Report 7875856-0 (Version None)
Quarter: 2011Q4

REPORT INFORMATION
  Report Type: 
  Country: None (occurrence: None)
  Receive Date: 20111031
  Receipt Date: 20111020
  Transmission Date: 20120403
  Serious: Yes (Other)
  Sender: FDA-Public Use
  Company Number: PHHY2011JP54172

PATIENT
  Sex: Male
  Weight: 59 kg

DRUGS (11)
  1. NORVASC [Concomitant]
     Dosage: 5 MG, UNK
     Dates: start: 20110518
  2. AFINITOR [Suspect]
     Dosage: 5 MG, DAILY
     Route: 048
     Dates: start: 20110603, end: 20110606
  3. ALLOPURINOL [Concomitant]
     Indication: PROPHYLAXIS
     Dosage: 100 MG, UNK
     Dates: start: 20110518
  4. AFINITOR [Suspect]
     Dosage: 5 MG, DAILY
     Route: 048
     Dates: start: 20110613, end: 20110626
  5. AFINITOR [Suspect]
     Indication: METASTATIC RENAL CELL CARCINOMA
     Dosage: 10 MG, DAILY
     Route: 048
     Dates: start: 20110518, end: 20110527
  6. AFINITOR [Suspect]
     Dosage: 5 MG, DAILY
     Route: 048
     Dates: start: 20110528, end: 20110530
  7. AFINITOR [Suspect]
     Dosage: 10 MG, DAILY
     Route: 048
     Dates: start: 20110607, end: 20110609
  8. TECELEUKIN [Concomitant]
     Dosage: 700000 IU, UNK
     Dates: start: 20070705, end: 20081017
  9. SORAFENIB TOSILATE [Concomitant]
     Dosage: 800 MG, UNK
     Dates: start: 20081031, end: 20110511
  10. DIOVAN [Concomitant]
     Dosage: 40 MG, UNK
     Dates: start: 20110518
  11. NITRAZEPAM [Concomitant]
     Indication: METASTATIC RENAL CELL CARCINOMA
     Dosage: 5 MG, UNK
     Dates: start: 20110518

REACTIONS (1)
  - WHITE BLOOD CELL COUNT DECREASED [None]
